FAERS Safety Report 8619079-6 (Version None)
Quarter: 2012Q3

REPORT INFORMATION
  Report Type: 
  Country: None (occurrence: None)
  Receive Date: 20120816
  Receipt Date: 20120816
  Transmission Date: 20120928
  Serious: Yes (Hospitalization)
  Sender: FDA-Public Use
  Company Number: None

PATIENT
  Sex: Male
  Weight: 86.1834 kg

DRUGS (1)
  1. GAMUNEX [Suspect]
     Indication: AUTONOMIC NEUROPATHY
     Dosage: 2G/KG DAILY X 3 DAYS IV
     Route: 042
     Dates: start: 20120808, end: 20120809

REACTIONS (1)
  - BLOOD PRESSURE INCREASED [None]
